FAERS Safety Report 5341311-5 (Version None)
Quarter: 2007Q2

REPORT INFORMATION
  Report Type: 
  Country: None (occurrence: None)
  Receive Date: 20070404
  Receipt Date: 20061127
  Transmission Date: 20071010
  Serious: Yes (Other)
  Sender: FDA-Public Use
  Company Number: 2006146861

PATIENT
  Sex: Female

DRUGS (2)
  1. GEODON [Suspect]
  2. ASPIRIN [Concomitant]

REACTIONS (4)
  - FATIGUE [None]
  - NASOPHARYNGITIS [None]
  - POLYCYTHAEMIA [None]
  - PYREXIA [None]
